FAERS Safety Report 16415146 (Version 1)
Quarter: 2019Q2

REPORT INFORMATION
  Report Type: Spontaneous
  Country: US (occurrence: US)
  Receive Date: 20190611
  Receipt Date: 20190611
  Transmission Date: 20190711
  Serious: No
  Sender: FDA-Public Use
  Company Number: US-PFIZER INC-2019246108

PATIENT
  Age: 67 Year
  Sex: Female
  Weight: 46.72 kg

DRUGS (6)
  1. LISINOPRIL. [Concomitant]
     Active Substance: LISINOPRIL
     Indication: BLOOD PRESSURE ABNORMAL
     Dosage: 20 MG, 1X/DAY
     Route: 048
  2. RAPAMUNE [Suspect]
     Active Substance: SIROLIMUS
     Indication: RENAL TRANSPLANT
     Dosage: 3 DF, 1X/DAY (THREE TABLETS ONCE A DAY)
     Route: 048
  3. RAPAMUNE [Suspect]
     Active Substance: SIROLIMUS
     Dosage: 4 MG, 1X/DAY (4 TABLETS, ONCE A DAY)
     Route: 048
     Dates: start: 20010213
  4. VENLAFAXINE [VENLAFAXINE HYDROCHLORIDE] [Concomitant]
     Indication: EMOTIONAL DISORDER
     Dosage: 37.5 MG, 1X/DAY
     Route: 048
  5. VENLAFAXINE [VENLAFAXINE HYDROCHLORIDE] [Concomitant]
     Indication: ANXIETY
  6. ROSUVASTATIN. [Concomitant]
     Active Substance: ROSUVASTATIN
     Indication: BLOOD CHOLESTEROL
     Dosage: 10 MG, 1X/DAY
     Route: 048

REACTIONS (4)
  - Diarrhoea [Recovered/Resolved]
  - Road traffic accident [Recovering/Resolving]
  - Dizziness [Recovered/Resolved]
  - Malaise [Unknown]

NARRATIVE: CASE EVENT DATE: 2018
